FAERS Safety Report 5569881-2 (Version None)
Quarter: 2007Q4

REPORT INFORMATION
  Report Type: 
  Country: None (occurrence: None)
  Receive Date: 20071220
  Receipt Date: 20070305
  Transmission Date: 20080405
  Serious: No
  Sender: FDA-Public Use
  Company Number: US-ABBOTT-07P-163-0361762-00

PATIENT
  Age: 73 Year
  Sex: Female

DRUGS (1)
  1. OMNICEF [Suspect]
     Indication: BRONCHIAL DISORDER
     Route: 048
     Dates: start: 20070227, end: 20070301

REACTIONS (3)
  - ABDOMINAL PAIN [None]
  - DIARRHOEA [None]
  - FAECES DISCOLOURED [None]
